FAERS Safety Report 9517847 (Version 2)
Quarter: 2013Q4

REPORT INFORMATION
  Report Type: Spontaneous
  Country: US (occurrence: US)
  Receive Date: 20130912
  Receipt Date: 20131010
  Transmission Date: 20140711
  Serious: Yes (Other)
  Sender: FDA-Public Use
  Company Number: US-ASTRAZENECA-2013SE67610

PATIENT
  Sex: 0

DRUGS (7)
  1. ENTOCORT EC [Suspect]
     Route: 048
  2. IMUARAN [Suspect]
     Route: 065
  3. CIMZIA [Suspect]
     Route: 065
     Dates: end: 2011
  4. MORPHINE [Suspect]
     Route: 065
  5. PENTASA [Suspect]
     Route: 065
  6. ASACOL [Suspect]
     Route: 065
  7. PRED [Concomitant]

REACTIONS (10)
  - Pancreatitis [Unknown]
  - Serum sickness [Unknown]
  - Condition aggravated [Unknown]
  - Stress [Unknown]
  - Anxiety [Unknown]
  - Weight increased [Unknown]
  - Osteoporosis [Unknown]
  - Osteoarthritis [Unknown]
  - Urticaria [Unknown]
  - Drug ineffective [Unknown]
